FAERS Safety Report 25129844 (Version 3)
Quarter: 2025Q2

REPORT INFORMATION
  Report Type: Report from Study
  Country: JP (occurrence: JP)
  Receive Date: 20250327
  Receipt Date: 20250619
  Transmission Date: 20250717
  Serious: Yes (Other)
  Sender: EISAI
  Company Number: JP-Eisai-202405890_LEQ_P_1

PATIENT
  Age: 76 Year
  Sex: Female
  Weight: 37 kg

DRUGS (4)
  1. LEQEMBI [Suspect]
     Active Substance: LECANEMAB-IRMB
     Indication: Cognitive disorder
     Dosage: FREQUENCY UNKNOWN
     Route: 041
     Dates: start: 20240718
  2. LEQEMBI [Suspect]
     Active Substance: LECANEMAB-IRMB
     Dosage: FREQUENCY UNKNOWN
     Route: 041
     Dates: start: 20250130, end: 20250130
  3. RIVASTIGMINE [Concomitant]
     Active Substance: RIVASTIGMINE
  4. DIETARY SUPPLEMENT\PROBIOTICS [Concomitant]
     Active Substance: DIETARY SUPPLEMENT\PROBIOTICS NOS

REACTIONS (1)
  - Rash [Recovering/Resolving]

NARRATIVE: CASE EVENT DATE: 20250130
